FAERS Safety Report 16630184 (Version 1)
Quarter: 2019Q3

REPORT INFORMATION
  Report Type: Spontaneous
  Country: US (occurrence: US)
  Receive Date: 20190725
  Receipt Date: 20190725
  Transmission Date: 20191004
  Serious: No
  Sender: FDA-Public Use
  Company Number: US-GLENMARK PHARMACEUTICALS-2019GMK041735

PATIENT

DRUGS (4)
  1. ONDANSETRON ORALLY DISINTEGRATING TABLETS [Suspect]
     Active Substance: ONDANSETRON
     Indication: NAUSEA
     Dosage: UNK, PRN (AS NEEDED)
     Route: 048
     Dates: start: 20190608, end: 20190609
  2. ALEVE [Concomitant]
     Active Substance: NAPROXEN SODIUM
     Indication: BILIARY COLIC
     Dosage: 150 MG, QD
     Route: 048
     Dates: start: 20190608, end: 20190609
  3. ALEVE [Concomitant]
     Active Substance: NAPROXEN SODIUM
     Indication: CHOLELITHIASIS
  4. ALEVE [Concomitant]
     Active Substance: NAPROXEN SODIUM
     Indication: CHOLECYSTITIS

REACTIONS (7)
  - Wrong technique in product usage process [Unknown]
  - Therapeutic product effect incomplete [Unknown]
  - Product friable [Unknown]
  - Product packaging difficult to open [Unknown]
  - Product communication issue [Unknown]
  - Inappropriate schedule of product administration [Unknown]
  - Product use in unapproved indication [Unknown]

NARRATIVE: CASE EVENT DATE: 201906
